FAERS Safety Report 11820345 (Version 1)
Quarter: 2015Q4

REPORT INFORMATION
  Report Type: Spontaneous
  Country: RO (occurrence: RO)
  Receive Date: 20151210
  Receipt Date: 20151210
  Transmission Date: 20160305
  Serious: Yes (Hospitalization)
  Sender: FDA-Public Use
  Company Number: RO-UCBSA-2015039267

PATIENT
  Age: 39 Year
  Sex: Male

DRUGS (6)
  1. XYZAL [Suspect]
     Active Substance: LEVOCETIRIZINE DIHYDROCHLORIDE
     Indication: OFF LABEL USE
  2. CEFOTAXIME [Concomitant]
     Active Substance: CEFOTAXIME SODIUM
     Indication: EYE INJURY
     Dosage: 1 G, 2X/DAY (BID)
     Route: 042
  3. MOXIFLOXACIN. [Concomitant]
     Active Substance: MOXIFLOXACIN
     Indication: EYE INJURY
     Dosage: UNKNOWN DOSE
  4. HYDROCORTISONE HEMISUCCINATE [Concomitant]
     Active Substance: HYDROCORTISONE HEMISUCCINATE
     Indication: DRUG ERUPTION
     Dosage: 100 MG AT A 2 HOUR-INTERVAL
     Route: 030
  5. XYZAL [Suspect]
     Active Substance: LEVOCETIRIZINE DIHYDROCHLORIDE
     Indication: DRUG ERUPTION
     Dosage: 5 MG SINGLE
     Route: 048
  6. INDOMETACIN [Concomitant]
     Active Substance: INDOMETHACIN
     Indication: EYE INJURY
     Dosage: UNKNOWN DOSE

REACTIONS (3)
  - Intraocular pressure increased [Recovered/Resolved]
  - Off label use [Unknown]
  - Corneal oedema [Unknown]
